FAERS Safety Report 7630622-6 (Version None)
Quarter: 2011Q3

REPORT INFORMATION
  Report Type: 
  Country: None (occurrence: None)
  Receive Date: 20110722
  Receipt Date: 20110708
  Transmission Date: 20111222
  Serious: Yes (Other)
  Sender: FDA-Public Use
  Company Number: TW-WATSON-2011-10937

PATIENT
  Age: 31 Year
  Sex: Female

DRUGS (4)
  1. MORPHINE SULFATE [Suspect]
     Route: 008
  2. FENTANYL [Suspect]
     Indication: LABOUR PAIN
     Route: 008
  3. BUPIVACAINE HCL [Suspect]
     Indication: LABOUR PAIN
     Route: 008
  4. ROPIVACAINE HYDROCHLORIDE [Suspect]
     Indication: LABOUR PAIN
     Route: 008

REACTIONS (1)
  - STAPHYLOCOCCAL INFECTION [None]
